FAERS Safety Report 4754968-4 (Version None)
Quarter: 2005Q3

REPORT INFORMATION
  Report Type: 
  Country: None (occurrence: None)
  Receive Date: 20050825
  Receipt Date: 20050809
  Transmission Date: 20060218
  Serious: Yes (Other)
  Sender: FDA-Public Use
  Company Number: 2005-0008434

PATIENT
  Age: 41 Year
  Sex: Female
  Weight: 50 kg

DRUGS (8)
  1. VIREAD [Suspect]
     Indication: HIV INFECTION
     Dosage: 300 MG, 1 IN 1 D, ORAL
     Route: 048
     Dates: start: 20020723, end: 20050310
  2. KALETRA [Concomitant]
  3. FUZEON [Concomitant]
  4. ZOVIRAX [Concomitant]
  5. LEVOCARNIL (LEVOCARNITINE) [Concomitant]
  6. TOCOPHEROX [Concomitant]
  7. SELENIUM (SELENIUM) [Concomitant]
  8. FENOFIBRATE [Concomitant]

REACTIONS (13)
  - ASEPTIC NECROSIS BONE [None]
  - BONE FISSURE [None]
  - DEHYDRATION [None]
  - ENTHESOPATHY [None]
  - HYPOCALCAEMIA [None]
  - HYPOPHOSPHATAEMIA [None]
  - INTERVERTEBRAL DISC DISORDER [None]
  - INTERVERTEBRAL DISC PROTRUSION [None]
  - MUSCLE ATROPHY [None]
  - OSTEOPENIA [None]
  - PERINEURIAL CYST [None]
  - POLYARTHRITIS [None]
  - SYNOVIAL CYST [None]
